FAERS Safety Report 11497978 (Version 2)
Quarter: 2015Q3

REPORT INFORMATION
  Report Type: Report from Study
  Country: US (occurrence: US)
  Receive Date: 20150911
  Receipt Date: 20150917
  Transmission Date: 20151125
  Serious: Yes (Hospitalization)
  Sender: FDA-Public Use
  Company Number: US-ABBVIE-15P-163-1460015-00

PATIENT
  Age: 31 Year
  Sex: Male

DRUGS (4)
  1. METHOTREXATE [Suspect]
     Active Substance: METHOTREXATE
     Indication: PSORIASIS
     Route: 065
     Dates: start: 20150825
  2. HUMIRA [Suspect]
     Active Substance: ADALIMUMAB
     Indication: PSORIASIS
     Route: 058
     Dates: start: 20150714, end: 20150825
  3. BACTROBAN [Concomitant]
     Active Substance: MUPIROCIN\MUPIROCIN CALCIUM
     Indication: PSORIASIS
     Route: 061
  4. TRIAMCINOLONE [Concomitant]
     Active Substance: TRIAMCINOLONE
     Indication: PSORIASIS
     Route: 061

REACTIONS (9)
  - Myositis [Recovering/Resolving]
  - Cellulitis [Recovering/Resolving]
  - Pyrexia [Not Recovered/Not Resolved]
  - Platelet count increased [Unknown]
  - Diarrhoea [Not Recovered/Not Resolved]
  - White blood cell count increased [Unknown]
  - Haemoglobin decreased [Unknown]
  - Peripheral swelling [Not Recovered/Not Resolved]
  - Fasciitis [Recovering/Resolving]

NARRATIVE: CASE EVENT DATE: 20150825
